FAERS Safety Report 25208002 (Version 1)
Quarter: 2025Q2

REPORT INFORMATION
  Report Type: Spontaneous
  Country: US (occurrence: US)
  Receive Date: 20250417
  Receipt Date: 20250417
  Transmission Date: 20250716
  Serious: No
  Sender: MYLAN
  Company Number: US-MYLANLABS-2025M1029250

PATIENT
  Sex: Female

DRUGS (4)
  1. BREYNA [Suspect]
     Active Substance: BUDESONIDE\FORMOTEROL FUMARATE
     Indication: Pulmonary mass
     Dosage: 320 MICROGRAM, BID (2 PUFFS BY MOUTH TWICE A DAY)
     Dates: start: 202503
  2. BREYNA [Suspect]
     Active Substance: BUDESONIDE\FORMOTEROL FUMARATE
     Dosage: 320 MICROGRAM, BID (2 PUFFS BY MOUTH TWICE A DAY)
     Route: 055
     Dates: start: 202503
  3. BREYNA [Suspect]
     Active Substance: BUDESONIDE\FORMOTEROL FUMARATE
     Dosage: 320 MICROGRAM, BID (2 PUFFS BY MOUTH TWICE A DAY)
     Route: 055
     Dates: start: 202503
  4. BREYNA [Suspect]
     Active Substance: BUDESONIDE\FORMOTEROL FUMARATE
     Dosage: 320 MICROGRAM, BID (2 PUFFS BY MOUTH TWICE A DAY)
     Dates: start: 202503

REACTIONS (4)
  - Off label use [Unknown]
  - Device information output issue [Unknown]
  - Device malfunction [Unknown]
  - Device issue [Unknown]
